FAERS Safety Report 15923276 (Version 1)
Quarter: 2019Q1

REPORT INFORMATION
  Report Type: Spontaneous
  Country: US (occurrence: US)
  Receive Date: 20190206
  Receipt Date: 20190206
  Transmission Date: 20190417
  Serious: Yes (Other)
  Sender: FDA-Public Use
  Company Number: None

PATIENT
  Age: 43 Year
  Sex: Female
  Weight: 57.6 kg

DRUGS (1)
  1. CLONAZEPAM. [Suspect]
     Active Substance: CLONAZEPAM
     Indication: PANIC DISORDER
     Dosage: ?          QUANTITY:35 TABLET(S);?
     Route: 048

REACTIONS (18)
  - Palpitations [None]
  - Tremor [None]
  - Insomnia [None]
  - Vision blurred [None]
  - Poor quality sleep [None]
  - Decreased appetite [None]
  - Osteomyelitis [None]
  - Impaired driving ability [None]
  - Dizziness [None]
  - Loss of personal independence in daily activities [None]
  - Chest pain [None]
  - Panic attack [None]
  - Middle insomnia [None]
  - Headache [None]
  - Product substitution issue [None]
  - Chest discomfort [None]
  - Muscle contractions involuntary [None]
  - Anxiety [None]

NARRATIVE: CASE EVENT DATE: 20190120
